FAERS Safety Report 24340515 (Version 6)
Quarter: 2025Q2

REPORT INFORMATION
  Report Type: Report from Study
  Country: IT (occurrence: IT)
  Receive Date: 20240919
  Receipt Date: 20250610
  Transmission Date: 20250717
  Serious: No
  Sender: TAKEDA
  Company Number: IT-TAKEDA-2024TUS092560

PATIENT
  Sex: Male

DRUGS (9)
  1. ADYNOVATE [Suspect]
     Active Substance: ANTIHEMOPHILIC FACTOR, HUMAN RECOMBINANT
     Indication: Factor VIII deficiency
     Dosage: 55 INTERNATIONAL UNIT/KILOGRAM, 2/WEEK
     Dates: start: 20221013
  2. ADYNOVATE [Suspect]
     Active Substance: ANTIHEMOPHILIC FACTOR, HUMAN RECOMBINANT
  3. ADYNOVATE [Suspect]
     Active Substance: ANTIHEMOPHILIC FACTOR, HUMAN RECOMBINANT
  4. HEMOFIL M [Concomitant]
     Active Substance: ANTIHEMOPHILIC FACTOR HUMAN
     Indication: Melaena
     Dates: start: 20031010, end: 20050504
  5. SILODOSIN [Concomitant]
     Active Substance: SILODOSIN
     Indication: Benign prostatic hyperplasia
     Dosage: 8 MILLIGRAM, QD
     Dates: start: 20190715
  6. XANAX [Concomitant]
     Active Substance: ALPRAZOLAM
     Indication: Depression
     Dosage: 1 MILLIGRAM, QD
     Dates: start: 20210916
  7. IRBESARTAN [Concomitant]
     Active Substance: IRBESARTAN
     Indication: Hypertension
     Dosage: 150 MILLIGRAM, QD
     Dates: start: 20190715
  8. VORTIOXETINE [Concomitant]
     Active Substance: VORTIOXETINE
     Indication: Depression
     Dosage: 5 MILLIGRAM, QD
     Dates: start: 20240731
  9. IRBESARTAN [Concomitant]
     Active Substance: IRBESARTAN
     Indication: Hypertension
     Dosage: 150 MILLIGRAM, QD
     Dates: start: 20190715

REACTIONS (1)
  - Haemorrhoidal haemorrhage [Recovered/Resolved]

NARRATIVE: CASE EVENT DATE: 20230904
